FAERS Safety Report 4196112 (Version 1)
Quarter: 2020Q3

REPORT INFORMATION
  Report Type: Report from Study
  Country: DE (occurrence: DE)
  Receive Date: 20040825
  Receipt Date: 20040825
  Transmission Date: 20201104
  Serious: Yes (Other)
  Sender: FDA-Public Use
  Company Number: EMADSS2002001950

PATIENT
  Age: 53 Year
  Sex: Female
  Weight: 86.6 kg

DRUGS (7)
  1. TOPIRAMATE. [Suspect]
     Active Substance: TOPIRAMATE
     Route: 049
     Dates: start: 20001218, end: 20020314
  2. SORTIS [Interacting]
     Active Substance: ATORVASTATIN
     Indication: HYPERCHOLESTEROLAEMIA
     Route: 049
     Dates: start: 20011212, end: 20020314
  3. LEVOTHYROXIN [Concomitant]
     Active Substance: LEVOTHYROXINE
     Route: 049
  4. ESTRADIOL VALERATE. [Concomitant]
     Active Substance: ESTRADIOL VALERATE
     Route: 049
  5. TOPIRAMATE. [Suspect]
     Active Substance: TOPIRAMATE
     Indication: OBESITY
     Route: 049
     Dates: start: 20001218, end: 20020314
  6. FLUPIRTINE MALEATE [Concomitant]
     Active Substance: FLUPIRTINE MALEATE
     Route: 049
  7. MERIGEST [Concomitant]
     Route: 049

REACTIONS (4)
  - Hepatitis B antibody positive [None]
  - Aspartate aminotransferase increased [None]
  - Alanine aminotransferase increased [None]
  - Drug interaction [None]

NARRATIVE: CASE EVENT DATE: 20020312
